FAERS Safety Report 8474318-X (Version None)
Quarter: 2012Q2

REPORT INFORMATION
  Report Type: 
  Country: None (occurrence: None)
  Receive Date: 20120628
  Receipt Date: 20120620
  Transmission Date: 20120825
  Serious: Yes (Hospitalization, Other)
  Sender: FDA-Public Use
  Company Number: US-US-EMD SERONO, INC.-230125J10USA

PATIENT
  Sex: Female

DRUGS (6)
  1. ANALGESIC [Concomitant]
     Indication: PREMEDICATION
  2. LEXAPRO [Concomitant]
     Indication: DEPRESSION
  3. SLEEPING PILL [Concomitant]
     Indication: INSOMNIA
  4. REBIF [Suspect]
     Indication: MULTIPLE SCLEROSIS
     Route: 058
     Dates: start: 20091111, end: 20100104
  5. EYE DROPS [Concomitant]
     Indication: GLAUCOMA
  6. LIPITOR [Concomitant]
     Indication: HYPERTENSION

REACTIONS (8)
  - MENTAL IMPAIRMENT [None]
  - SUICIDAL IDEATION [None]
  - CHILLS [None]
  - MEMORY IMPAIRMENT [None]
  - MUSCULOSKELETAL STIFFNESS [None]
  - DEPRESSION [None]
  - INFLUENZA LIKE ILLNESS [None]
  - CONVULSION [None]
